FAERS Safety Report 21254246 (Version 6)
Quarter: 2023Q1

REPORT INFORMATION
  Report Type: Report from Study
  Country: US (occurrence: US)
  Receive Date: 20220825
  Receipt Date: 20230323
  Transmission Date: 20230418
  Serious: No
  Sender: FDA-Public Use
  Company Number: US-NOVARTISTESTPH-NVSC2022US189362

PATIENT
  Sex: Male

DRUGS (1)
  1. COSENTYX [Suspect]
     Active Substance: SECUKINUMAB
     Indication: Psoriatic arthropathy
     Dosage: UNK
     Route: 058

REACTIONS (7)
  - Onychomycosis [Unknown]
  - Sinusitis [Unknown]
  - Nail disorder [Unknown]
  - Respiratory tract infection [Unknown]
  - Arthralgia [Unknown]
  - Drug ineffective [Unknown]
  - Product distribution issue [Unknown]
